FAERS Safety Report 6156394-2 (Version None)
Quarter: 2009Q2

REPORT INFORMATION
  Report Type: 
  Country: None (occurrence: None)
  Receive Date: 20090416
  Receipt Date: 20090406
  Transmission Date: 20091009
  Serious: Yes (Congenital Anomaly, Other)
  Sender: FDA-Public Use
  Company Number: GB-RANBAXY-2009RR-23356

PATIENT
  Age: 12 Week
  Sex: Male

DRUGS (7)
  1. AMOXICILLIN [Suspect]
     Dosage: 250 MG, TID
     Route: 064
     Dates: start: 20080707
  2. CODEINE [Suspect]
     Dosage: 30 MG, PRN
     Route: 064
  3. FERROUS SULFATE TAB [Suspect]
     Dosage: 200 MG, BID
     Route: 064
     Dates: start: 20081006
  4. VENLAFAXINE HCL [Suspect]
     Indication: BIPOLAR DISORDER
     Dosage: 150 MG, UNK
     Route: 064
     Dates: start: 20050624
  5. PRIADEL [Suspect]
     Indication: BIPOLAR DISORDER
     Dosage: 1200 MG, UNK
     Route: 064
     Dates: start: 20050101
  6. QUETIAPINE FUMARATE [Suspect]
     Indication: BIPOLAR DISORDER
     Dosage: 100 MG, UNK
     Dates: start: 20080421, end: 20080616
  7. REBOXETINE [Suspect]
     Indication: BIPOLAR DISORDER
     Dosage: 4 MG, UNK
     Route: 064
     Dates: start: 20050101, end: 20080529

REACTIONS (1)
  - PIERRE ROBIN SYNDROME [None]
